FAERS Safety Report 19276521 (Version 1)
Quarter: 2021Q2

REPORT INFORMATION
  Report Type: Report from Study
  Country: None (occurrence: AU)
  Receive Date: 20210520
  Receipt Date: 20210520
  Transmission Date: 20210717
  Serious: Yes (Other)
  Sender: FDA-Public Use
  Company Number: AU-ABBVIE-20K-008-3514697-00

PATIENT
  Age: 60 Year
  Sex: Male

DRUGS (3)
  1. DUODOPA [Suspect]
     Active Substance: CARBIDOPA\LEVODOPA
     Indication: PARKINSON^S DISEASE
     Dosage: CONTINUOUS DOSE WAS 5.2 MLS/H.
     Route: 050
     Dates: start: 20150427
  2. DUODOPA [Suspect]
     Active Substance: CARBIDOPA\LEVODOPA
     Dosage: CONTINUOUS DOSE WAS 8.5 MLS/HR.?DOSE INCREASED.
     Route: 050
     Dates: start: 20200106
  3. DUODOPA [Suspect]
     Active Substance: CARBIDOPA\LEVODOPA
     Dosage: CONTINUOUS DOSE WAS 7 MLS/HR.?DOSE DECREASED.
     Route: 050

REACTIONS (12)
  - Gambling [Unknown]
  - Gait disturbance [Not Recovered/Not Resolved]
  - Stoma site infection [Unknown]
  - Freezing phenomenon [Unknown]
  - Aggression [Unknown]
  - Weight increased [Unknown]
  - Stoma site odour [Unknown]
  - Stoma site discharge [Recovered/Resolved]
  - Stoma site hypergranulation [Unknown]
  - Embedded device [Unknown]
  - Hyperphagia [Unknown]
  - Intentional product use issue [Unknown]

NARRATIVE: CASE EVENT DATE: 20200723
